FAERS Safety Report 8968153 (Version 1)
Quarter: 2012Q4

REPORT INFORMATION
  Report Type: Spontaneous
  Country: US (occurrence: None)
  Receive Date: 20121214
  Receipt Date: 20121214
  Transmission Date: 20130627
  Serious: Yes (Hospitalization)
  Sender: FDA-Public Use
  Company Number: None

PATIENT
  Age: 86 Year
  Sex: Female

DRUGS (15)
  1. DECITABINE [Suspect]
     Indication: MDS
     Dates: start: 002107
  2. DECITABINE [Suspect]
     Indication: ACUTE MYELOID LEUKEMIA
     Dates: start: 002107
  3. DECITABINE [Suspect]
     Indication: MDS
     Dates: start: 002307
  4. DECITABINE [Suspect]
     Indication: ACUTE MYELOID LEUKEMIA
     Dates: start: 002307
  5. DECITABINE [Suspect]
     Indication: MDS
     Dates: start: 002607
  6. DECITABINE [Suspect]
     Indication: ACUTE MYELOID LEUKEMIA
     Dates: start: 002607
  7. DECITABINE [Suspect]
     Indication: MDS
     Dates: start: 002807
  8. DECITABINE [Suspect]
     Indication: ACUTE MYELOID LEUKEMIA
     Dates: start: 002807
  9. PROMACTA [Concomitant]
  10. ACYCLOVIR [Concomitant]
  11. MARINOL [Concomitant]
  12. ENULOSE [Concomitant]
  13. HYDREA [Concomitant]
  14. AMLODOPINE [Concomitant]
  15. LISINOPRIL [Concomitant]

REACTIONS (1)
  - Escherichia urinary tract infection [None]
